FAERS Safety Report 11906372 (Version 1)
Quarter: 2016Q1

REPORT INFORMATION
  Report Type: Spontaneous
  Country: US (occurrence: US)
  Receive Date: 20160111
  Receipt Date: 20160111
  Transmission Date: 20160526
  Serious: No
  Sender: FDA-Public Use
  Company Number: US-PFIZER INC-2015453858

PATIENT
  Age: 41 Year
  Sex: Female
  Weight: 61.22 kg

DRUGS (1)
  1. LYRICA [Suspect]
     Active Substance: PREGABALIN
     Indication: FIBROMYALGIA
     Dosage: 225 MG, 2X/DAY

REACTIONS (7)
  - Paraesthesia [Unknown]
  - Product quality issue [Unknown]
  - Sensory disturbance [Not Recovered/Not Resolved]
  - Condition aggravated [Not Recovered/Not Resolved]
  - Neuralgia [Recovering/Resolving]
  - Back pain [Unknown]
  - Tinnitus [Unknown]
